FAERS Safety Report 6781136-7 (Version None)
Quarter: 2010Q2

REPORT INFORMATION
  Report Type: 
  Country: None (occurrence: None)
  Receive Date: 20100621
  Receipt Date: 20100521
  Transmission Date: 20101027
  Serious: No
  Sender: FDA-Public Use
  Company Number: US-BAYER-201015941BCC

PATIENT
  Age: 23 Year
  Sex: Female
  Weight: 57 kg

DRUGS (1)
  1. MIDOL [Suspect]
     Indication: MENSTRUAL DISORDER
     Route: 065

REACTIONS (3)
  - MENSTRUAL DISORDER [None]
  - NAUSEA [None]
  - PYREXIA [None]
